FAERS Safety Report 8661052 (Version 3)
Quarter: 2012Q4

REPORT INFORMATION
  Report Type: 
  Country: GR (occurrence: GR)
  Receive Date: 20120711
  Receipt Date: 20120910
  Transmission Date: 20130627
  Serious: Yes (Hospitalization)
  Sender: FDA-Public Use
  Company Number: GR-ABBOTT-12P-066-0954967-00

PATIENT
  Age: 4 Year
  Sex: Male

DRUGS (1)
  1. KLARICID [Suspect]

REACTIONS (1)
  - Acute disseminated encephalomyelitis [Recovering/Resolving]
